FAERS Safety Report 13760186 (Version 1)
Quarter: 2017Q3

REPORT INFORMATION
  Report Type: Spontaneous
  Country: US (occurrence: US)
  Receive Date: 20170717
  Receipt Date: 20170717
  Transmission Date: 20171127
  Serious: No
  Sender: FDA-Public Use
  Company Number: US-BAUSCH-BL-2017-010576

PATIENT
  Age: 57 Year
  Sex: Female
  Weight: 90.35 kg

DRUGS (4)
  1. XIFAXAN [Suspect]
     Active Substance: RIFAXIMIN
     Indication: OVERGROWTH BACTERIAL
     Route: 048
     Dates: start: 20170405
  2. HYDROCHLOROTHIAZIDE 25 MG [Concomitant]
     Active Substance: HYDROCHLOROTHIAZIDE
     Indication: HYPERTENSION
     Route: 048
  3. CODEINE 30 MG [Concomitant]
     Active Substance: CODEINE
     Indication: ABDOMINAL DISCOMFORT
     Dosage: ONE TABLET AS NEEDED UP TO THREE TIMES DAILY
     Route: 048
     Dates: start: 2016
  4. XIFAXAN [Suspect]
     Active Substance: RIFAXIMIN
     Indication: IRRITABLE BOWEL SYNDROME
     Dosage: WITH A DOSING OF 60 TABLETS FOR 30 DAYS
     Route: 048
     Dates: start: 2015

REACTIONS (1)
  - Treatment noncompliance [Unknown]
